FAERS Safety Report 4980913-2 (Version None)
Quarter: 2006Q2

REPORT INFORMATION
  Report Type: 
  Country: None (occurrence: None)
  Receive Date: 20060418
  Receipt Date: 20060403
  Transmission Date: 20061013
  Serious: Yes (Other)
  Sender: FDA-Public Use
  Company Number: US200603007322

PATIENT
  Age: 41 Year
  Sex: Female

DRUGS (9)
  1. CYMBALTA [Suspect]
     Indication: DEPRESSION
     Dosage: 30 MG, DAILY (1/D), ORAL
     Route: 048
     Dates: start: 20060314
  2. PROCARDIA [Concomitant]
  3. NATURES OWN REFLUX FREE OMEGA-3 FISH OIL (OMEGA-3 MARINE TRIGLYCERIDES [Concomitant]
  4. WELCHOL [Concomitant]
  5. ALBUTEROL [Concomitant]
  6. XANAX /USA/ (ALPRAZOLAM) [Concomitant]
  7. SINGULAIR [Concomitant]
  8. BAYER PM (ACETYLSALICYLIC ACID, DIPHENHYDRAMINE HYDROCHLORIDE) [Concomitant]
  9. REMERON [Concomitant]

REACTIONS (20)
  - ACTIVITIES OF DAILY LIVING IMPAIRED [None]
  - ASTHENIA [None]
  - ASTHMA [None]
  - CARDIAC PROCEDURE COMPLICATION [None]
  - CATHETER SITE HAEMORRHAGE [None]
  - CATHETERISATION CARDIAC [None]
  - DELUSION [None]
  - DIZZINESS [None]
  - DRUG DOSE OMISSION [None]
  - DYSPNOEA [None]
  - FALL [None]
  - FATIGUE [None]
  - FEELING ABNORMAL [None]
  - HYPERHIDROSIS [None]
  - INSOMNIA [None]
  - LETHARGY [None]
  - PARANOIA [None]
  - POST PROCEDURAL HAEMORRHAGE [None]
  - SPEECH DISORDER [None]
  - TREMOR [None]
